FAERS Safety Report 6770765-2 (Version None)
Quarter: 2010Q2

REPORT INFORMATION
  Report Type: 
  Country: None (occurrence: None)
  Receive Date: 20100615
  Receipt Date: 20100608
  Transmission Date: 20101027
  Serious: Yes (Other)
  Sender: FDA-Public Use
  Company Number: IT-ALLERGAN-1007554US

PATIENT
  Age: 81 Year
  Sex: Female

DRUGS (1)
  1. BOTOX [Suspect]
     Indication: OESOPHAGEAL ACHALASIA
     Dosage: 100 UNITS, SINGLE

REACTIONS (2)
  - GASTRIC PERFORATION [None]
  - INTESTINAL DILATATION [None]
